FAERS Safety Report 4867673-0 (Version None)
Quarter: 2005Q4

REPORT INFORMATION
  Report Type: 
  Country: None (occurrence: None)
  Receive Date: 20051222
  Receipt Date: 19991011
  Transmission Date: 20060501
  Serious: Yes (Death, Hospitalization)
  Sender: FDA-Public Use
  Company Number: 8-99200-108A

PATIENT
  Age: 53 Year
  Sex: Male

DRUGS (1)
  1. MYLOTARG [Suspect]
     Indication: ACUTE MYELOID LEUKAEMIA
     Dosage: 9 MG/M2, INTRAVENOUS
     Route: 042
     Dates: start: 19990628, end: 19990628

REACTIONS (3)
  - BACTERIAL SEPSIS [None]
  - CATHETER RELATED INFECTION [None]
  - HYPOTENSION [None]
